FAERS Safety Report 6274557-2 (Version None)
Quarter: 2009Q3

REPORT INFORMATION
  Report Type: 
  Country: None (occurrence: None)
  Receive Date: 20090720
  Receipt Date: 20070403
  Transmission Date: 20100115
  Serious: Yes (Life-Threatening, Hospitalization, Other)
  Sender: FDA-Public Use
  Company Number: GB-AVENTIS-200916952GDDC

PATIENT
  Age: 49 Year
  Sex: Female

DRUGS (4)
  1. GLIBENCLAMIDE [Suspect]
  2. METFORMIN HCL [Suspect]
  3. LOSARTAN POTASSIUM [Suspect]
     Indication: HYPERTENSION
  4. HYDROCHLOROTHIAZIDE [Suspect]
     Indication: HYPERTENSION

REACTIONS (16)
  - BASE EXCESS [None]
  - BLOOD POTASSIUM INCREASED [None]
  - BLOOD PRESSURE INCREASED [None]
  - CARDIOACTIVE DRUG LEVEL INCREASED [None]
  - CIRCULATORY COLLAPSE [None]
  - GASTROENTERITIS [None]
  - HAEMODIALYSIS [None]
  - HYPERVENTILATION [None]
  - HYPOGLYCAEMIA [None]
  - LACTIC ACIDOSIS [None]
  - METABOLIC ACIDOSIS [None]
  - MYDRIASIS [None]
  - OVERDOSE [None]
  - RENAL FAILURE ACUTE [None]
  - SUBARACHNOID HAEMORRHAGE [None]
  - UNRESPONSIVE TO STIMULI [None]
